FAERS Safety Report 9202098 (Version 3)
Quarter: 2013Q3

REPORT INFORMATION
  Report Type: Spontaneous
  Country: US (occurrence: US)
  Receive Date: 20130401
  Receipt Date: 20130708
  Transmission Date: 20140515
  Serious: Yes (Hospitalization)
  Sender: FDA-Public Use
  Company Number: US-BRISTOL-MYERS SQUIBB COMPANY-18708859

PATIENT
  Age: 54 Year
  Sex: Female
  Weight: 105.21 kg

DRUGS (5)
  1. ABATACEPT SUBQ INJECTION 125MG/ML [Suspect]
     Indication: RHEUMATOID ARTHRITIS
     Dosage: LAST INJ: 03FEB13; RESTARTED ON JUN2013
     Route: 058
  2. NORCO [Concomitant]
     Dosage: 1DF: 10/325MG
  3. TYLOX [Concomitant]
  4. TYLENOL + CODEINE [Concomitant]
     Dosage: 1DF: 1-2 TABS
  5. METHOTREXATE [Concomitant]

REACTIONS (1)
  - Back disorder [Unknown]
